FAERS Safety Report 23180409 (Version 2)
Quarter: 2023Q4

REPORT INFORMATION
  Report Type: Spontaneous
  Country: PL (occurrence: PL)
  Receive Date: 20231114
  Receipt Date: 20231206
  Transmission Date: 20240110
  Serious: Yes (Other)
  Sender: FDA-Public Use
  Company Number: PL-009507513-2308POL000924

PATIENT
  Age: 52 Year
  Sex: Female

DRUGS (6)
  1. PEMETREXED [Suspect]
     Active Substance: PEMETREXED
     Indication: Non-small cell lung cancer metastatic
     Dosage: FIRST-LINE TREATMENT, 200 MG
     Route: 065
     Dates: start: 202202
  2. PEMETREXED [Suspect]
     Active Substance: PEMETREXED
     Dosage: 500 MG/M2
     Route: 065
     Dates: start: 202202
  3. PEMETREXED [Suspect]
     Active Substance: PEMETREXED
     Dosage: MAINTENANCE TREATMENT
     Route: 065
     Dates: start: 202202
  4. CARBOPLATIN [Suspect]
     Active Substance: CARBOPLATIN
     Indication: Non-small cell lung cancer metastatic
     Dosage: FIRST-LINE TREATMENT, AREA UNDER THE CURVE (AUC) 6
     Route: 065
     Dates: start: 202202
  5. PEMBROLIZUMAB [Suspect]
     Active Substance: PEMBROLIZUMAB
     Indication: Non-small cell lung cancer metastatic
     Dosage: FIRST-LINE TREATMENT
     Route: 065
     Dates: start: 202202
  6. PEMBROLIZUMAB [Suspect]
     Active Substance: PEMBROLIZUMAB
     Dosage: MAINTENANCE TREATMENT
     Route: 065
     Dates: start: 202202

REACTIONS (1)
  - Malignant neoplasm oligoprogression [Unknown]

NARRATIVE: CASE EVENT DATE: 20230101
